FAERS Safety Report 15617487 (Version 1)
Quarter: 2018Q4

REPORT INFORMATION
  Report Type: Spontaneous
  Country: RU (occurrence: RU)
  Receive Date: 20181114
  Receipt Date: 20181114
  Transmission Date: 20190205
  Serious: Yes (Other)
  Sender: FDA-Public Use
  Company Number: RU-ASTRAZENECA-2018SF48632

PATIENT
  Age: 55 Year
  Sex: Female
  Weight: 143 kg

DRUGS (5)
  1. MOXONIDINE [Concomitant]
     Active Substance: MOXONIDINE
  2. VALSACOR [Concomitant]
     Active Substance: VALSARTAN
  3. VERAPAMIL [Concomitant]
     Active Substance: VERAPAMIL HYDROCHLORIDE
  4. FELODIPINE. [Concomitant]
     Active Substance: FELODIPINE
  5. SYMBICORT [Suspect]
     Active Substance: BUDESONIDE\FORMOTEROL FUMARATE DIHYDRATE
     Dosage: 50\500 DOSES\320\9 DOSES UNKNOWN UNKNOWN
     Route: 055

REACTIONS (1)
  - Asphyxia [Recovered/Resolved]
